FAERS Safety Report 5104208-1 (Version None)
Quarter: 2006Q3

REPORT INFORMATION
  Report Type: 
  Country: None (occurrence: None)
  Receive Date: 20060911
  Receipt Date: 20060824
  Transmission Date: 20061208
  Serious: Yes (Death, Other)
  Sender: FDA-Public Use
  Company Number: CAN-2006-0000354

PATIENT
  Age: 52 Year
  Sex: Male

DRUGS (2)
  1. HYDROMORPHONE HYDROCHLORIDE [Suspect]
     Indication: DRUG USE FOR UNKNOWN INDICATION
     Dosage: SEE TEXT
  2. NAPROXEN [Suspect]

REACTIONS (3)
  - BRONCHIAL CARCINOMA [None]
  - METASTATIC NEOPLASM [None]
  - MYOCARDIAL INFARCTION [None]
